FAERS Safety Report 6195489-4 (Version None)
Quarter: 2009Q2

REPORT INFORMATION
  Report Type: 
  Country: None (occurrence: None)
  Receive Date: 20090519
  Receipt Date: 20090427
  Transmission Date: 20091009
  Serious: Yes (Hospitalization)
  Sender: FDA-Public Use
  Company Number: DE-JNJFOC-20090105646

PATIENT
  Sex: Female
  Weight: 96 kg

DRUGS (32)
  1. GOLIMUMAB [Suspect]
     Route: 058
  2. GOLIMUMAB [Suspect]
     Route: 058
  3. GOLIMUMAB [Suspect]
     Route: 058
  4. GOLIMUMAB [Suspect]
     Route: 058
  5. GOLIMUMAB [Suspect]
     Route: 058
  6. GOLIMUMAB [Suspect]
     Route: 058
  7. GOLIMUMAB [Suspect]
     Route: 058
  8. GOLIMUMAB [Suspect]
     Route: 058
  9. GOLIMUMAB [Suspect]
     Route: 058
  10. GOLIMUMAB [Suspect]
     Route: 058
  11. GOLIMUMAB [Suspect]
     Route: 058
  12. GOLIMUMAB [Suspect]
     Route: 058
  13. GOLIMUMAB [Suspect]
     Route: 058
  14. GOLIMUMAB [Suspect]
     Route: 058
  15. GOLIMUMAB [Suspect]
     Route: 058
  16. GOLIMUMAB [Suspect]
     Route: 058
  17. GOLIMUMAB [Suspect]
     Route: 058
  18. GOLIMUMAB [Suspect]
     Route: 058
  19. GOLIMUMAB [Suspect]
     Route: 058
  20. GOLIMUMAB [Suspect]
     Route: 058
  21. GOLIMUMAB [Suspect]
     Route: 058
  22. GOLIMUMAB [Suspect]
     Route: 058
  23. GOLIMUMAB [Suspect]
     Route: 058
  24. GOLIMUMAB [Suspect]
     Indication: RHEUMATOID ARTHRITIS
     Route: 058
  25. DICLOFENAC [Concomitant]
     Route: 048
  26. PREDNISOLONE [Concomitant]
     Route: 048
  27. CALCILAC [Concomitant]
     Route: 048
  28. FOLSAN [Concomitant]
     Route: 048
  29. PANTOZOL [Concomitant]
     Route: 048
  30. INH [Concomitant]
     Route: 048
  31. ALENDRONIC ACID [Concomitant]
     Route: 048
  32. METHOTREXATE SODIUM [Concomitant]
     Route: 048

REACTIONS (5)
  - BONE DISORDER [None]
  - DIVERTICULITIS [None]
  - OVARIAN CYST [None]
  - SALPINGITIS [None]
  - UTERINE LEIOMYOMA [None]
